FAERS Safety Report 16367120 (Version 1)
Quarter: 2019Q2

REPORT INFORMATION
  Report Type: Spontaneous
  Country: CN (occurrence: CN)
  Receive Date: 20190529
  Receipt Date: 20190529
  Transmission Date: 20190711
  Serious: Yes (Death, Hospitalization, Other)
  Sender: FDA-Public Use
  Company Number: CN-BAUSCH-BL-2019-015256

PATIENT
  Age: 34 Year
  Sex: Male

DRUGS (15)
  1. GEMCITABINE [Suspect]
     Active Substance: GEMCITABINE\GEMCITABINE HYDROCHLORIDE
     Indication: ANGIOCENTRIC LYMPHOMA
  2. GEMCITABINE [Suspect]
     Active Substance: GEMCITABINE\GEMCITABINE HYDROCHLORIDE
     Indication: MENINGIOMA
  3. METHOTREXATE. [Suspect]
     Active Substance: METHOTREXATE
     Indication: SCHWANNOMA
     Dosage: FREQUENCY: 3 CYCLICAL
     Route: 065
     Dates: start: 2017
  4. DEXAMETHASONE. [Suspect]
     Active Substance: DEXAMETHASONE
     Indication: MENINGIOMA
     Dosage: FREQUENCY: 3 CYCLICAL
     Route: 065
     Dates: start: 2017
  5. DEXAMETHASONE. [Suspect]
     Active Substance: DEXAMETHASONE
     Indication: ANGIOCENTRIC LYMPHOMA
  6. L-ASPARAGINASE [Suspect]
     Active Substance: ASPARAGINASE
     Indication: ANGIOCENTRIC LYMPHOMA
  7. OXALIPLATIN. [Suspect]
     Active Substance: OXALIPLATIN
     Indication: MENINGIOMA
  8. L-ASPARAGINASE [Suspect]
     Active Substance: ASPARAGINASE
     Indication: SCHWANNOMA
     Dosage: FREQUENCY: 3 CYCLICAL
     Route: 065
     Dates: start: 2017
  9. GEMCITABINE [Suspect]
     Active Substance: GEMCITABINE\GEMCITABINE HYDROCHLORIDE
     Indication: SCHWANNOMA
     Dosage: FREQUENCY: 3 CYCLICAL
     Route: 065
     Dates: start: 2017
  10. L-ASPARAGINASE [Suspect]
     Active Substance: ASPARAGINASE
     Indication: MENINGIOMA
  11. METHOTREXATE. [Suspect]
     Active Substance: METHOTREXATE
     Indication: ANGIOCENTRIC LYMPHOMA
  12. DEXAMETHASONE. [Suspect]
     Active Substance: DEXAMETHASONE
     Indication: SCHWANNOMA
  13. OXALIPLATIN. [Suspect]
     Active Substance: OXALIPLATIN
     Indication: ANGIOCENTRIC LYMPHOMA
  14. OXALIPLATIN. [Suspect]
     Active Substance: OXALIPLATIN
     Indication: SCHWANNOMA
     Dosage: FREQUENCY: 3 CYCLICAL
     Route: 065
     Dates: start: 2017
  15. METHOTREXATE. [Suspect]
     Active Substance: METHOTREXATE
     Indication: MENINGIOMA

REACTIONS (2)
  - Infection [Fatal]
  - Neutropenia [Fatal]

NARRATIVE: CASE EVENT DATE: 2017
